FAERS Safety Report 9880860 (Version 2)
Quarter: 2014Q1

REPORT INFORMATION
  Report Type: Spontaneous
  Country: US (occurrence: US)
  Receive Date: 20140207
  Receipt Date: 20140311
  Transmission Date: 20141002
  Serious: No
  Sender: FDA-Public Use
  Company Number: US-PFIZER INC-2014034572

PATIENT
  Age: 86 Year
  Sex: Female
  Weight: 69.39 kg

DRUGS (9)
  1. LYRICA [Suspect]
     Indication: RESTLESS LEGS SYNDROME
     Dosage: 100 MG, 1X/DAY
     Route: 048
     Dates: start: 201312
  2. LYRICA [Suspect]
     Dosage: UNK
  3. LYRICA [Suspect]
     Dosage: UNK
  4. COZAAR [Concomitant]
     Indication: HYPERTENSION
     Dosage: UNK, 1X/DAY
  5. COREG [Concomitant]
     Indication: HYPERTENSION
     Dosage: 6.25 MG, 2X/DAY
  6. LEVOTHROID [Concomitant]
     Indication: THYROID DISORDER
     Dosage: 75 UG, 1X/DAY
  7. COUMADINE [Concomitant]
     Dosage: 175 MG, 1X/DAY
  8. IRON [Concomitant]
     Indication: IRON DEFICIENCY
     Dosage: 325 MG, 2X/DAY
     Route: 048
  9. LASIX [Concomitant]
     Indication: OEDEMA PERIPHERAL
     Dosage: 80 MG, 1X/DAY
     Route: 048
     Dates: start: 2013

REACTIONS (3)
  - Off label use [Unknown]
  - Cough [Recovered/Resolved]
  - Dyspnoea [Recovered/Resolved]
